FAERS Safety Report 16853159 (Version 5)
Quarter: 2021Q2

REPORT INFORMATION
  Report Type: Spontaneous
  Country: US (occurrence: US)
  Receive Date: 20190925
  Receipt Date: 20210517
  Transmission Date: 20210716
  Serious: Yes (Other)
  Sender: FDA-Public Use
  Company Number: US-GILEAD-2019-0429655

PATIENT
  Age: 66 Year
  Sex: Male
  Weight: 58.96 kg

DRUGS (44)
  1. PYRIMETHAMINE [Concomitant]
     Active Substance: PYRIMETHAMINE
  2. DIPHENOXYLATE [Concomitant]
     Active Substance: DIPHENOXYLATE
  3. EPIVIR [Concomitant]
     Active Substance: LAMIVUDINE
  4. SUSTIVA [Concomitant]
     Active Substance: EFAVIRENZ
  5. TRICOR [ADENOSINE] [Concomitant]
     Active Substance: ADENOSINE
  6. VITAMIN D3 [Concomitant]
     Active Substance: CHOLECALCIFEROL
  7. FOLIC ACID. [Concomitant]
     Active Substance: FOLIC ACID
  8. FROVATRIPTAN. [Concomitant]
     Active Substance: FROVATRIPTAN
  9. CYMBALTA [Concomitant]
     Active Substance: DULOXETINE HYDROCHLORIDE
  10. ACYCLOVIR [ACICLOVIR] [Concomitant]
     Active Substance: ACYCLOVIR
  11. ATOVAQUONE. [Concomitant]
     Active Substance: ATOVAQUONE
  12. ECONAZOLE. [Concomitant]
     Active Substance: ECONAZOLE NITRATE
  13. GATIFLOXACIN. [Concomitant]
     Active Substance: GATIFLOXACIN
  14. PRAVASTATIN. [Concomitant]
     Active Substance: PRAVASTATIN
  15. CAVERJECT [Concomitant]
     Active Substance: ALPROSTADIL
  16. VALACYCLOVIR [Concomitant]
     Active Substance: VALACYCLOVIR HYDROCHLORIDE
  17. VIREAD [Suspect]
     Active Substance: TENOFOVIR DISOPROXIL FUMARATE
     Indication: HIV INFECTION
     Dosage: UNK
     Route: 048
     Dates: start: 20011212, end: 20041115
  18. CALCIUM CITRATE [Concomitant]
     Active Substance: CALCIUM CITRATE
  19. ZERIT [Concomitant]
     Active Substance: STAVUDINE
  20. ATENOLOL. [Concomitant]
     Active Substance: ATENOLOL
  21. SILDENAFIL. [Concomitant]
     Active Substance: SILDENAFIL
  22. KALETRA [Concomitant]
     Active Substance: LOPINAVIR\RITONAVIR
  23. LISINOPRIL. [Concomitant]
     Active Substance: LISINOPRIL
  24. PANCRELIPASE. [Concomitant]
     Active Substance: PANCRELIPASE
  25. REMERON [Concomitant]
     Active Substance: MIRTAZAPINE
  26. CRIXIVAN [Concomitant]
     Active Substance: INDINAVIR SULFATE
  27. ISENTRESS [Concomitant]
     Active Substance: RALTEGRAVIR POTASSIUM
  28. ULTRASE [AMYLASE;LIPASE;PROTEASE NOS] [Concomitant]
  29. BIKTARVY [Concomitant]
     Active Substance: BICTEGRAVIR SODIUM\EMTRICITABINE\TENOFOVIR ALAFENAMIDE FUMARATE
  30. CIPROFLOXACIN. [Concomitant]
     Active Substance: CIPROFLOXACIN
  31. ERYTHROMYCIN. [Concomitant]
     Active Substance: ERYTHROMYCIN
  32. FLUCONAZOLE. [Concomitant]
     Active Substance: FLUCONAZOLE
  33. GEMFIBROZIL. [Concomitant]
     Active Substance: GEMFIBROZIL
  34. ROSUVASTATIN. [Concomitant]
     Active Substance: ROSUVASTATIN
  35. TRIMETHOPRIM SULFA [Concomitant]
     Active Substance: TRIMETHOPRIM SULFATE
  36. MOXIFLOXACIN. [Concomitant]
     Active Substance: MOXIFLOXACIN
  37. TRUVADA [Suspect]
     Active Substance: EMTRICITABINE\TENOFOVIR DISOPROXIL FUMARATE
     Indication: HIV INFECTION
     Dosage: UNK
     Route: 048
     Dates: start: 20041115, end: 20080926
  38. CLARITHROMYCIN. [Concomitant]
     Active Substance: CLARITHROMYCIN
  39. DIAZEPAM. [Concomitant]
     Active Substance: DIAZEPAM
  40. HYOSCYAMINE. [Concomitant]
     Active Substance: HYOSCYAMINE
  41. IMIQUIMOD. [Concomitant]
     Active Substance: IMIQUIMOD
  42. EMTRIVA [Concomitant]
     Active Substance: EMTRICITABINE
  43. FLUOXETINE [Concomitant]
     Active Substance: FLUOXETINE HYDROCHLORIDE
  44. SERTRALINE [Concomitant]
     Active Substance: SERTRALINE HYDROCHLORIDE

REACTIONS (20)
  - Osteoporosis [Not Recovered/Not Resolved]
  - Loss of personal independence in daily activities [Not Recovered/Not Resolved]
  - Spinal cord compression [Unknown]
  - Foot fracture [Recovered/Resolved]
  - Blood creatinine increased [Not Recovered/Not Resolved]
  - Rib fracture [Unknown]
  - Upper limb fracture [Unknown]
  - Emotional distress [Not Recovered/Not Resolved]
  - Anxiety [Not Recovered/Not Resolved]
  - Anhedonia [Not Recovered/Not Resolved]
  - Asthenia [Recovering/Resolving]
  - Lower limb fracture [Unknown]
  - Bone density decreased [Unknown]
  - Quality of life decreased [Not Recovered/Not Resolved]
  - Economic problem [Not Recovered/Not Resolved]
  - Osteopenia [Not Recovered/Not Resolved]
  - Renal impairment [Unknown]
  - Muscle spasms [Recovering/Resolving]
  - Fear [Not Recovered/Not Resolved]
  - Pain [Recovering/Resolving]

NARRATIVE: CASE EVENT DATE: 200408
